FAERS Safety Report 9344441 (Version 3)
Quarter: 2013Q3

REPORT INFORMATION
  Report Type: Report from Study
  Country: AR (occurrence: AR)
  Receive Date: 20130612
  Receipt Date: 20130823
  Transmission Date: 20140515
  Serious: Yes (Other)
  Sender: FDA-Public Use
  Company Number: PHHY2013AR058887

PATIENT
  Age: 26 Year
  Sex: Male

DRUGS (1)
  1. GILENYA [Suspect]
     Indication: MULTIPLE SCLEROSIS
     Dosage: 1 DF, QD
     Route: 048
     Dates: start: 201209, end: 201303

REACTIONS (4)
  - Bone marrow disorder [Recovering/Resolving]
  - Central nervous system lesion [Recovering/Resolving]
  - Multiple sclerosis relapse [Unknown]
  - Drug ineffective [Unknown]
